FAERS Safety Report 16956543 (Version 2)
Quarter: 2019Q4

REPORT INFORMATION
  Report Type: Spontaneous
  Country: CN (occurrence: CN)
  Receive Date: 20191024
  Receipt Date: 20191029
  Transmission Date: 20200122
  Serious: Yes (Death, Hospitalization)
  Sender: FDA-Public Use
  Company Number: CN-ROCHE-2442574

PATIENT
  Age: 59 Year
  Sex: Female
  Weight: 44 kg

DRUGS (17)
  1. CHLORHEXIDINE [Concomitant]
     Active Substance: CHLORHEXIDINE
     Route: 065
     Dates: start: 20190921, end: 20190924
  2. METHOXYPHENAMINE HYDROCHLORIDE [Concomitant]
     Active Substance: METHOXYPHENAMINE HYDROCHLORIDE
     Dosage: DF= CAPSULES
     Route: 048
     Dates: start: 20190919, end: 20190924
  3. SODIUM CHLORIDE. [Concomitant]
     Active Substance: SODIUM CHLORIDE
     Dosage: LOT NO. S1905087, SOLVENT FOR BEVACIZUMAB
     Route: 041
     Dates: start: 20190911, end: 20190911
  4. METOPROLOL SUCCINATE. [Concomitant]
     Active Substance: METOPROLOL SUCCINATE
     Indication: VENTRICULAR EXTRASYSTOLES
     Route: 048
     Dates: start: 20190307, end: 20190923
  5. WATER-SOLUBLE VITAMINS [Concomitant]
     Route: 041
     Dates: start: 20190829, end: 20190928
  6. AVASTIN [Suspect]
     Active Substance: BEVACIZUMAB
     Indication: OVARIAN CANCER
     Route: 065
     Dates: start: 20190911, end: 20190911
  7. ROCEPHIN [Suspect]
     Active Substance: CEFTRIAXONE SODIUM
     Indication: ANTI-INFECTIVE THERAPY
     Route: 041
     Dates: start: 20190926, end: 20190927
  8. SODIUM CHLORIDE. [Concomitant]
     Active Substance: SODIUM CHLORIDE
     Dosage: LOT NO. 19050412, SOLVENT FOR COMPOUND IPRATROPIUM BROMIDE SOLUTION FOR INHALATION
     Route: 055
     Dates: start: 20190829, end: 20190928
  9. POTASSIUM CHLORIDE. [Concomitant]
     Active Substance: POTASSIUM CHLORIDE
     Indication: NUTRITIONAL SUPPLEMENTATION
     Route: 041
     Dates: start: 20190829, end: 20190929
  10. ETOPOSIDE. [Suspect]
     Active Substance: ETOPOSIDE
     Indication: OVARIAN CANCER
     Route: 048
     Dates: start: 20190911, end: 20190923
  11. IPRATROPIUM BROMIDE. [Concomitant]
     Active Substance: IPRATROPIUM BROMIDE
     Route: 055
     Dates: start: 20190919, end: 20190927
  12. TRAMADOL HYDROCHLORIDE. [Concomitant]
     Active Substance: TRAMADOL HYDROCHLORIDE
     Indication: ANALGESIC THERAPY
     Route: 048
     Dates: start: 20190820, end: 20190926
  13. MAGNESIUM SULFATE. [Concomitant]
     Active Substance: MAGNESIUM SULFATE
     Indication: NUTRITIONAL SUPPLEMENTATION
     Route: 041
     Dates: start: 20190829, end: 20190928
  14. LACTULOSE. [Concomitant]
     Active Substance: LACTULOSE
     Indication: FAECAL DISIMPACTION
     Route: 048
     Dates: start: 20190831, end: 20190919
  15. ACETYLCYSTEINE. [Concomitant]
     Active Substance: ACETYLCYSTEINE
     Route: 048
     Dates: start: 20190919, end: 20190924
  16. CONCENTRATED SODIUM CHLORIDE [Concomitant]
     Active Substance: SODIUM CHLORIDE
     Indication: NUTRITIONAL SUPPLEMENTATION
     Route: 041
     Dates: start: 20190829, end: 20190928
  17. CALCIUM GLUCONATE. [Concomitant]
     Active Substance: CALCIUM GLUCONATE
     Indication: NUTRITIONAL SUPPLEMENTATION
     Route: 041
     Dates: start: 20190829, end: 20190928

REACTIONS (11)
  - Cytopenia [Fatal]
  - Peritonitis [Fatal]
  - Septic shock [Fatal]
  - Pyrexia [Fatal]
  - Diarrhoea [Fatal]
  - Chest discomfort [Fatal]
  - Central nervous system infection [Fatal]
  - Off label use [Unknown]
  - Herpes simplex [Fatal]
  - Intentional product use issue [Unknown]
  - Tachycardia [Fatal]

NARRATIVE: CASE EVENT DATE: 20190922
